FAERS Safety Report 25592223 (Version 4)
Quarter: 2025Q4

REPORT INFORMATION
  Report Type: Report from Study
  Country: BR (occurrence: BR)
  Receive Date: 20250722
  Receipt Date: 20251015
  Transmission Date: 20260117
  Serious: Yes (Other)
  Sender: NOVARTIS
  Company Number: BR-002147023-NVSC2025BR099749

PATIENT
  Sex: Male
  Weight: 112 kg

DRUGS (9)
  1. COSENTYX [Suspect]
     Active Substance: SECUKINUMAB
     Indication: Hidradenitis
     Dosage: 150 MG, QMO
     Route: 058
     Dates: start: 202302
  2. COSENTYX [Suspect]
     Active Substance: SECUKINUMAB
     Indication: Ankylosing spondylitis
     Dosage: 450 MG, (2 INJECTIONS PER MONTH, 300MG ONCE A MONTH AND 150MG ONCE A MONTH) (LAST INJECTION WAS PERF
     Route: 058
  3. COSENTYX [Suspect]
     Active Substance: SECUKINUMAB
     Dosage: UNK (150 MG/ML INJECTION SOLUTION)
     Route: 058
  4. COSENTYX [Suspect]
     Active Substance: SECUKINUMAB
     Dosage: UNK (300 MG/ML INJECTION SOLUTION)
     Route: 058
  5. COSENTYX [Suspect]
     Active Substance: SECUKINUMAB
     Dosage: 300 MG, (300 MG SOLUTION FOR INJECTION CONTAINED IN 1 FILLED CLEAR GLASS SYRINGE X 2 ML + 1 APPLICAT
     Route: 058
  6. COSENTYX [Suspect]
     Active Substance: SECUKINUMAB
     Dosage: UNK (150 MG/ML SOLUTION FOR INJECTION CONTAINED IN 1 FILLED CLEAR GLASS SYRINGE X 1 ML + 1 APPLICATO
     Route: 058
  7. COSENTYX [Suspect]
     Active Substance: SECUKINUMAB
     Dosage: 30 MGINJECTABLE SOLUTION CONTAINED IN 1 FILLED CLEAR GLASS SYRINGE X 2 ML + 1 APPLICATOR PEN
     Route: 065
  8. COSENTYX [Suspect]
     Active Substance: SECUKINUMAB
     Dosage: 300 MG, (INJECTABLE SOLUTION CONTAINED IN 1 FILLED CLEAR  GLASS  SYRINGE  X 2 ML +  1  APPLICATOR PE
     Route: 065
  9. LISDEXAMFETAMINE DIMESYLATE [Concomitant]
     Active Substance: LISDEXAMFETAMINE DIMESYLATE
     Indication: Attention deficit hyperactivity disorder
     Dosage: 50 MG, QD  1X DAILY
     Route: 048

REACTIONS (15)
  - Subcutaneous abscess [Unknown]
  - Fistula [Unknown]
  - Pain [Unknown]
  - Nodule [Unknown]
  - Hidradenitis [Not Recovered/Not Resolved]
  - Condition aggravated [Not Recovered/Not Resolved]
  - Skin lesion [Unknown]
  - Drug ineffective [Unknown]
  - Off label use [Unknown]
  - Injury [Unknown]
  - Wound [Unknown]
  - Arthralgia [Not Recovered/Not Resolved]
  - Inflammation [Not Recovered/Not Resolved]
  - Musculoskeletal stiffness [Not Recovered/Not Resolved]
  - Back pain [Not Recovered/Not Resolved]
